FAERS Safety Report 6620038-3 (Version None)
Quarter: 2010Q1

REPORT INFORMATION
  Report Type: 
  Country: None (occurrence: None)
  Receive Date: 20100309
  Receipt Date: 20100302
  Transmission Date: 20100710
  Serious: Yes (Life-Threatening, Hospitalization)
  Sender: FDA-Public Use
  Company Number: FR-CELGENEUS-056-20785-09110914

PATIENT
  Sex: Female
  Weight: 90 kg

DRUGS (16)
  1. THALIDOMIDE [Suspect]
     Route: 048
     Dates: start: 20090327, end: 20090528
  2. THALIDOMIDE [Suspect]
     Route: 048
     Dates: start: 20090529, end: 20090730
  3. THALIDOMIDE [Suspect]
     Route: 048
     Dates: start: 20090731, end: 20090929
  4. THALIDOMIDE [Suspect]
     Route: 048
     Dates: start: 20091009, end: 20091105
  5. DEXAMETHASONE [Suspect]
     Route: 065
     Dates: start: 20090527, end: 20090528
  6. DEXAMETHASONE [Suspect]
     Route: 065
     Dates: start: 20090529, end: 20091103
  7. BACTRIM [Concomitant]
     Indication: PROPHYLAXIS
     Route: 048
     Dates: start: 20090327, end: 20091105
  8. ZELITREX [Concomitant]
     Indication: PROPHYLAXIS
     Route: 048
     Dates: start: 20090928, end: 20091105
  9. SPECIAFOLDINE [Concomitant]
     Indication: INFECTION PROPHYLAXIS
     Route: 048
     Dates: start: 20090327, end: 20091105
  10. RANI SINTROM [Concomitant]
     Indication: THROMBOSIS PROPHYLAXIS
     Route: 048
     Dates: start: 20090928, end: 20091105
  11. INIPOMP [Concomitant]
     Indication: PROPHYLAXIS
     Route: 048
     Dates: start: 20090928, end: 20091105
  12. LOXEN [Concomitant]
     Route: 048
     Dates: start: 20070101, end: 20091106
  13. ZESTORETIC [Concomitant]
     Route: 048
     Dates: start: 20070101
  14. DIAMICRON [Concomitant]
     Route: 048
     Dates: start: 20070101
  15. LOVENOX [Concomitant]
     Indication: ANTICOAGULANT THERAPY
     Route: 065
  16. ANTIBIOTICS [Concomitant]
     Indication: DRUG USE FOR UNKNOWN INDICATION
     Route: 065
     Dates: start: 20090901

REACTIONS (1)
  - PERITONITIS [None]
